FAERS Safety Report 5302544-7 (Version None)
Quarter: 2007Q2

REPORT INFORMATION
  Report Type: 
  Country: None (occurrence: None)
  Receive Date: 20070419
  Receipt Date: 20070406
  Transmission Date: 20071010
  Serious: Yes (Hospitalization)
  Sender: FDA-Public Use
  Company Number: PHEH2007US04484

PATIENT
  Age: 64 Year
  Sex: Female

DRUGS (1)
  1. ZELNORM [Suspect]
     Indication: IRRITABLE BOWEL SYNDROME
     Dosage: 6 MG, BID
     Route: 048
     Dates: start: 20061002, end: 20070404

REACTIONS (4)
  - CARDIAC FAILURE [None]
  - DEPENDENCE ON RESPIRATOR [None]
  - GASTROINTESTINAL INFECTION [None]
  - PULMONARY OEDEMA [None]
